FAERS Safety Report 5885338-3 (Version None)
Quarter: 2008Q3

REPORT INFORMATION
  Report Type: 
  Country: None (occurrence: None)
  Receive Date: 20080916
  Receipt Date: 20080904
  Transmission Date: 20090109
  Serious: Yes (Hospitalization)
  Sender: FDA-Public Use
  Company Number: FR-PFIZER INC-2008074922

PATIENT
  Sex: Male
  Weight: 80 kg

DRUGS (10)
  1. ADRIBLASTINE [Suspect]
     Route: 042
     Dates: start: 20080611, end: 20080611
  2. FASTURTEC [Suspect]
     Route: 042
     Dates: start: 20080611, end: 20080611
  3. DAFALGAN [Suspect]
     Route: 048
     Dates: start: 20080611, end: 20080611
  4. ENDOXAN [Concomitant]
     Route: 042
     Dates: start: 20080611
  5. ONCOVIN [Concomitant]
     Route: 042
     Dates: start: 20080611
  6. RITUXIMAB [Concomitant]
     Route: 042
     Dates: start: 20080611
  7. CORTANCYL [Concomitant]
     Dates: start: 20080612, end: 20080615
  8. KYTRIL [Concomitant]
     Indication: PREMEDICATION
     Route: 048
     Dates: start: 20080611
  9. METHYLPREDNISOLONE 16MG TAB [Concomitant]
     Indication: PREMEDICATION
     Dates: start: 20080611
  10. DEXCHLORPHENIRAMINE MALEATE [Concomitant]
     Indication: PREMEDICATION
     Dates: start: 20080611

REACTIONS (2)
  - HAEMOLYTIC ANAEMIA [None]
  - METHAEMOGLOBINAEMIA [None]
